FAERS Safety Report 4461312-9 (Version None)
Quarter: 2004Q3

REPORT INFORMATION
  Report Type: 
  Country: None (occurrence: None)
  Receive Date: 20040928
  Receipt Date: 20040915
  Transmission Date: 20050211
  Serious: Yes (Other)
  Sender: FDA-Public Use
  Company Number: ES-GLAXOSMITHKLINE-B0346087A

PATIENT
  Age: 72 Year
  Sex: Female

DRUGS (1)
  1. VALTREX [Suspect]
     Indication: HERPES ZOSTER
     Route: 048
     Dates: start: 20040823, end: 20040901

REACTIONS (3)
  - DRY MOUTH [None]
  - SALIVARY DUCT OBSTRUCTION [None]
  - SALIVARY GLAND CALCULUS [None]
